FAERS Safety Report 4507224-3 (Version None)
Quarter: 2004Q4

REPORT INFORMATION
  Report Type: 
  Country: None (occurrence: None)
  Receive Date: 20041115
  Receipt Date: 20041025
  Transmission Date: 20050328
  Serious: Yes (Other)
  Sender: FDA-Public Use
  Company Number: 240045

PATIENT
  Age: 53 Year
  Sex: Female
  Weight: 49 kg

DRUGS (6)
  1. NOVOSEVEN [Suspect]
     Indication: UPPER GASTROINTESTINAL HAEMORRHAGE
     Dosage: 600UG/KG, 5 DOSES, INTRAVENOUS
     Route: 042
     Dates: start: 20041016, end: 20041017
  2. CORTANCIL (PREDNISONE) [Concomitant]
  3. PROPRANOLOL [Concomitant]
  4. OFLOCET (OFLOXACIN) [Concomitant]
  5. CLAFORAN (CEFOTAXIME SODIUIM) [Concomitant]
  6. NEXIUM [Concomitant]

REACTIONS (4)
  - BLOOD FIBRINOGEN DECREASED [None]
  - HAEMATEMESIS [None]
  - MELAENA [None]
  - PORTAL VEIN THROMBOSIS [None]
